FAERS Safety Report 10057784 (Version 1)
Quarter: 2014Q2

REPORT INFORMATION
  Report Type: Spontaneous
  Country: US (occurrence: US)
  Receive Date: 20140404
  Receipt Date: 20140404
  Transmission Date: 20141212
  Serious: No
  Sender: FDA-Public Use
  Company Number: US-009507513-1404USA002939

PATIENT
  Sex: Female

DRUGS (5)
  1. ISENTRESS [Suspect]
     Indication: HIV INFECTION
  2. EPIVIR [Concomitant]
  3. INTELENCE [Concomitant]
  4. LEXIVA [Concomitant]
  5. NORVIR [Concomitant]

REACTIONS (1)
  - Drug resistance [Unknown]
